FAERS Safety Report 5274977-9 (Version None)
Quarter: 2007Q1

REPORT INFORMATION
  Report Type: 
  Country: None (occurrence: None)
  Receive Date: 20061207
  Receipt Date: 20040623
  Transmission Date: 20070707
  Serious: No
  Sender: FDA-Public Use
  Company Number: 2004UW09818

PATIENT
  Age: 82 Year
  Sex: Female
  Weight: 54.4316 kg

DRUGS (5)
  1. TOPROL-XL [Suspect]
     Indication: TACHYARRHYTHMIA
     Dosage: 12.5 MG QD PO
     Route: 048
     Dates: start: 19990901, end: 20030913
  2. TOPROL-XL [Suspect]
     Indication: TACHYARRHYTHMIA
     Dosage: 25 MG QD PO
     Route: 048
     Dates: start: 20000101
  3. PAXIL [Suspect]
     Indication: BALANCE DISORDER
     Dosage: 10 MG QD PO
     Route: 048
  4. NORVASC [Suspect]
     Dosage: 5 MG QD PO
     Route: 048
  5. FAMOTIDINE [Concomitant]

REACTIONS (3)
  - BRADYCARDIA [None]
  - CONFUSIONAL STATE [None]
  - DIZZINESS [None]
